FAERS Safety Report 18170834 (Version 2)
Quarter: 2020Q4

REPORT INFORMATION
  Report Type: Spontaneous
  Country: BE (occurrence: BE)
  Receive Date: 20200819
  Receipt Date: 20201026
  Transmission Date: 20210113
  Serious: Yes (Death, Other)
  Sender: FDA-Public Use
  Company Number: BE-UCBSA-2020031385

PATIENT
  Sex: Male

DRUGS (1)
  1. KEPPRA [Suspect]
     Active Substance: LEVETIRACETAM
     Indication: PRODUCT USED FOR UNKNOWN INDICATION
     Dosage: UNK

REACTIONS (7)
  - Asthenia [Unknown]
  - Neoplasm progression [Unknown]
  - Speech disorder [Unknown]
  - Dizziness [Unknown]
  - Gait disturbance [Unknown]
  - Death [Fatal]
  - General physical health deterioration [Unknown]
